FAERS Safety Report 5186900-6 (Version None)
Quarter: 2006Q4

REPORT INFORMATION
  Report Type: 
  Country: None (occurrence: None)
  Receive Date: 20061220
  Receipt Date: 20061027
  Transmission Date: 20070319
  Serious: No
  Sender: FDA-Public Use
  Company Number: US-AMGEN-KDL198396

PATIENT
  Sex: Male

DRUGS (1)
  1. ENBREL [Suspect]
     Indication: ANKYLOSING SPONDYLITIS
     Route: 058
     Dates: start: 20050701

REACTIONS (7)
  - ASTHENIA [None]
  - BACK PAIN [None]
  - CHILLS [None]
  - CRYING [None]
  - EMOTIONAL DISTRESS [None]
  - FEELING COLD [None]
  - TREMOR [None]
